FAERS Safety Report 10261607 (Version 1)
Quarter: 2014Q2

REPORT INFORMATION
  Report Type: Spontaneous
  Country: DK (occurrence: FR)
  Receive Date: 20140626
  Receipt Date: 20140626
  Transmission Date: 20141212
  Serious: Yes (Hospitalization, Disabling)
  Sender: FDA-Public Use
  Company Number: FR-FRI-1000068481

PATIENT
  Age: 82 Year
  Sex: Female

DRUGS (4)
  1. ESCITALOPRAM [Suspect]
     Indication: DEPRESSION
     Dosage: 10 MG
     Route: 048
     Dates: end: 20131007
  2. LERCAN [Concomitant]
     Dosage: 10 MG
  3. INDAPAMIDE [Concomitant]
     Dosage: 1.5 MG
  4. COVERSYL [Concomitant]
     Dosage: 10 MG

REACTIONS (1)
  - Haemorrhagic stroke [Recovered/Resolved with Sequelae]
